FAERS Safety Report 24134188 (Version 5)
Quarter: 2024Q4

REPORT INFORMATION
  Report Type: Spontaneous
  Country: US (occurrence: US)
  Receive Date: 20240724
  Receipt Date: 20241028
  Transmission Date: 20250114
  Serious: No
  Sender: NOVARTIS
  Company Number: US-002147023-NVSC2024US151016

PATIENT
  Sex: Female

DRUGS (1)
  1. COSENTYX [Suspect]
     Active Substance: SECUKINUMAB
     Indication: Product used for unknown indication
     Dosage: 300 MG, QMO
     Route: 065

REACTIONS (6)
  - Device malfunction [Unknown]
  - Product leakage [Unknown]
  - Needle issue [Unknown]
  - Device audio issue [Unknown]
  - Product storage error [Unknown]
  - Drug dose omission by device [Unknown]
